FAERS Safety Report 24146668 (Version 2)
Quarter: 2024Q3

REPORT INFORMATION
  Report Type: Report from Study
  Country: CO (occurrence: CO)
  Receive Date: 20240729
  Receipt Date: 20240820
  Transmission Date: 20241017
  Serious: Yes (Hospitalization, Other)
  Sender: REGENERON
  Company Number: CO-BAYER-2023A125826

PATIENT
  Sex: Female

DRUGS (2)
  1. EYLEA [Suspect]
     Active Substance: AFLIBERCEPT
     Indication: Diabetic retinal oedema
     Dosage: 2 MG, LEFT EYE, SOLUTION FOR INJECTION, 40 MG/ML
     Dates: start: 20230817
  2. EYLEA [Suspect]
     Active Substance: AFLIBERCEPT
     Dosage: 2 MG, ONCE, LEFT EYE , SOLUTION FOR INJECTION, 40 MG/ML
     Route: 031
     Dates: start: 20240718, end: 20240718

REACTIONS (7)
  - Retinopexy [Unknown]
  - Cataract operation [Unknown]
  - Urinary tract infection [Unknown]
  - Diabetic metabolic decompensation [Unknown]
  - Visual impairment [Not Recovered/Not Resolved]
  - Inappropriate schedule of product administration [Recovered/Resolved]
  - Drug ineffective [Not Recovered/Not Resolved]

NARRATIVE: CASE EVENT DATE: 20230817
